FAERS Safety Report 24752499 (Version 1)
Quarter: 2024Q4

REPORT INFORMATION
  Report Type: Spontaneous
  Country: FR (occurrence: FR)
  Receive Date: 20241219
  Receipt Date: 20241219
  Transmission Date: 20250115
  Serious: Yes (Other)
  Sender: AUROBINDO
  Company Number: FR-JNJFOC-20241140173

PATIENT
  Age: 72 Year
  Sex: Female
  Weight: 61 kg

DRUGS (2)
  1. BORTEZOMIB [Suspect]
     Active Substance: BORTEZOMIB
     Indication: Plasma cell myeloma
     Dosage: UNK
     Route: 058
  2. TECLISTAMAB [Suspect]
     Active Substance: TECLISTAMAB
     Indication: Plasma cell myeloma
     Dosage: 1.5 MILLIGRAM/KILOGRAM, EVERY WEEK
     Route: 058
     Dates: start: 20240924, end: 20241015

REACTIONS (2)
  - Plasma cell myeloma [Unknown]
  - Off label use [Unknown]
